FAERS Safety Report 6221860-8 (Version None)
Quarter: 2009Q2

REPORT INFORMATION
  Report Type: 
  Country: None (occurrence: None)
  Receive Date: 20090609
  Receipt Date: 20090527
  Transmission Date: 20091009
  Serious: Yes (Other)
  Sender: FDA-Public Use
  Company Number: 2009AP002235

PATIENT
  Age: 16 Year
  Sex: Female

DRUGS (3)
  1. CYCLOSPORIN CAPSULES [Suspect]
     Indication: IMMUNOSUPPRESSION
  2. DEXAMETHASONE [Suspect]
     Indication: IMMUNOSUPPRESSION
  3. ETOPOSIDE [Concomitant]

REACTIONS (12)
  - ACTIVATED PARTIAL THROMBOPLASTIN TIME PROLONGED [None]
  - ALANINE AMINOTRANSFERASE INCREASED [None]
  - ASPARTATE AMINOTRANSFERASE INCREASED [None]
  - DELIRIUM [None]
  - DRUG INTERACTION [None]
  - DRUG LEVEL ABOVE THERAPEUTIC [None]
  - HYPERTENSION [None]
  - NEUROTOXICITY [None]
  - PROTHROMBIN TIME PROLONGED [None]
  - RENAL FAILURE ACUTE [None]
  - SERUM FERRITIN INCREASED [None]
  - SOMNOLENCE [None]
